FAERS Safety Report 5247131-4 (Version None)
Quarter: 2007Q1

REPORT INFORMATION
  Report Type: 
  Country: None (occurrence: None)
  Receive Date: 20070221
  Receipt Date: 20070206
  Transmission Date: 20070707
  Serious: Yes (Hospitalization)
  Sender: FDA-Public Use
  Company Number: CIP07000299

PATIENT
  Age: 76 Year
  Sex: Male
  Weight: 90.1 kg

DRUGS (3)
  1. ACTONEL [Suspect]
     Indication: OSTEOPOROSIS
     Dosage: UNK, UNK, ORAL
     Route: 048
     Dates: start: 20060401, end: 20060801
  2. PREDNISONE [Suspect]
     Indication: ECZEMA
     Dosage: 5-20 MG DAILY, ORAL
     Route: 048
     Dates: start: 19950101, end: 20061101
  3. AZATHIOPRINE [Suspect]
     Indication: STEROID THERAPY
     Dosage: 100-300 UNKNOWN, ORAL
     Route: 048
     Dates: start: 19950101

REACTIONS (20)
  - CLAVICLE FRACTURE [None]
  - CORONARY ARTERY DISEASE [None]
  - CORONARY ARTERY OCCLUSION [None]
  - DYSPHAGIA [None]
  - DYSPHONIA [None]
  - FALL [None]
  - GASTRIC HAEMORRHAGE [None]
  - HAEMOPTYSIS [None]
  - IATROGENIC INJURY [None]
  - LARGE INTESTINAL HAEMORRHAGE [None]
  - MALAISE [None]
  - OEDEMA PERIPHERAL [None]
  - OESOPHAGEAL HAEMORRHAGE [None]
  - OESOPHAGEAL INJURY [None]
  - PAIN IN EXTREMITY [None]
  - PROCEDURAL COMPLICATION [None]
  - PRODUCTIVE COUGH [None]
  - SKIN CANCER [None]
  - SPUTUM DISCOLOURED [None]
  - THROMBOSIS [None]
